FAERS Safety Report 5110853-X (Version None)
Quarter: 2006Q3

REPORT INFORMATION
  Report Type: 
  Country: None (occurrence: None)
  Receive Date: 20060919
  Receipt Date: 20060907
  Transmission Date: 20061208
  Serious: Yes (Other)
  Sender: FDA-Public Use
  Company Number: 2006108385

PATIENT
  Age: 51 Year
  Sex: Female

DRUGS (3)
  1. NORVASC [Suspect]
  2. ALTACE [Suspect]
     Dosage: 10 MG
  3. ASPIRIN [Suspect]
     Dosage: 325 MG

REACTIONS (1)
  - CEREBROVASCULAR ACCIDENT [None]
